FAERS Safety Report 6836276-0 (Version None)
Quarter: 2010Q3

REPORT INFORMATION
  Report Type: 
  Country: None (occurrence: None)
  Receive Date: 20100713
  Receipt Date: 20091124
  Transmission Date: 20110219
  Serious: No
  Sender: FDA-Public Use
  Company Number: US-TYCO HEALTHCARE/MALLINCKRODT-T200902269

PATIENT

DRUGS (13)
  1. OXYCODONE HCL [Suspect]
     Indication: PAIN
     Dosage: 2 TABS BID
     Route: 048
  2. FENTANYL [Concomitant]
     Indication: PAIN
     Dosage: 50 MG, Q72 HOURS
     Route: 062
  3. NEURONTIN [Concomitant]
     Indication: NEUROPATHY PERIPHERAL
     Dosage: 300 MG , 2  BID
     Route: 048
  4. SIMVASTIN-MEPHA [Concomitant]
     Indication: BLOOD CHOLESTEROL
     Dosage: 80 MG, QD
     Route: 048
  5. BISACODYL [Concomitant]
     Dosage: 5 MG, BID
     Route: 048
  6. AMLODIPINE [Concomitant]
     Indication: HYPERTENSION
     Dosage: 10 MG, QD
     Route: 048
  7. NEXIUM [Concomitant]
     Indication: GASTROOESOPHAGEAL REFLUX DISEASE
     Dosage: 40 MG, QD
     Route: 048
  8. LISINOPRIL [Concomitant]
     Indication: HYPERTENSION
     Dosage: 40 MG, QD
     Route: 048
  9. XANAX [Concomitant]
     Indication: BIPOLAR DISORDER
     Dosage: UNK, 1 TID
     Route: 048
  10. EPITOL [Concomitant]
     Indication: PROPHYLAXIS
     Dosage: 200 MG, TID
     Route: 048
  11. SEROQUEL [Concomitant]
     Indication: BIPOLAR DISORDER
     Dosage: 300 MG, BID
     Route: 048
  12. PROMETHAZINE [Concomitant]
     Indication: NAUSEA
     Dosage: 25 MG, QID
     Route: 048
  13. VITAMIN A [Concomitant]
     Indication: VITAMIN SUPPLEMENTATION
     Dosage: 1000 IU, QD
     Route: 048

REACTIONS (3)
  - DRUG EFFECT DECREASED [None]
  - DRUG SCREEN NEGATIVE [None]
  - WITHDRAWAL SYNDROME [None]
